FAERS Safety Report 12639354 (Version 2)
Quarter: 2016Q3

REPORT INFORMATION
  Report Type: Spontaneous
  Country: CN (occurrence: CN)
  Receive Date: 20160810
  Receipt Date: 20160822
  Transmission Date: 20161109
  Serious: Yes (Death, Other)
  Sender: FDA-Public Use
  Company Number: CN-ROCHE-1808724

PATIENT
  Age: 70 Year
  Sex: Male

DRUGS (9)
  1. RITUXIMAB [Suspect]
     Active Substance: RITUXIMAB
     Indication: DIFFUSE LARGE B-CELL LYMPHOMA
     Dosage: ON DAY 0 FOR 6 CYCLES
     Route: 042
     Dates: start: 201102, end: 201106
  2. RITUXIMAB [Suspect]
     Active Substance: RITUXIMAB
     Route: 042
     Dates: start: 201207
  3. RITUXIMAB [Suspect]
     Active Substance: RITUXIMAB
     Route: 042
     Dates: start: 201110
  4. RITUXIMAB [Suspect]
     Active Substance: RITUXIMAB
     Route: 042
     Dates: start: 201212
  5. EPIRUBICIN [Concomitant]
     Active Substance: EPIRUBICIN
     Indication: DIFFUSE LARGE B-CELL LYMPHOMA
     Dosage: ON DAY 1 FOR 6 CYCLES
     Route: 065
     Dates: start: 201102, end: 201106
  6. PREDNISONE. [Concomitant]
     Active Substance: PREDNISONE
     Indication: DIFFUSE LARGE B-CELL LYMPHOMA
     Dosage: ION DAYS 1-7 FOR 6 CYCLES
     Route: 065
     Dates: start: 201102, end: 201106
  7. CYCLOPHOSPHAMIDE. [Concomitant]
     Active Substance: CYCLOPHOSPHAMIDE
     Indication: DIFFUSE LARGE B-CELL LYMPHOMA
     Dosage: ON DAY 1 FOR 6 CYCLES
     Route: 065
     Dates: start: 201102, end: 201106
  8. VINCRISTINE [Concomitant]
     Active Substance: VINCRISTINE
     Indication: DIFFUSE LARGE B-CELL LYMPHOMA
     Dosage: ON DAY 1 FOR 6 CYCLES
     Route: 065
     Dates: start: 201102, end: 201106
  9. RITUXIMAB [Suspect]
     Active Substance: RITUXIMAB
     Route: 042
     Dates: start: 201201

REACTIONS (5)
  - Hepatitis B [Fatal]
  - Hepatorenal syndrome [Unknown]
  - Peritonitis [Unknown]
  - Hepatic encephalopathy [Unknown]
  - Hepatitis D [Unknown]
